FAERS Safety Report 9250438 (Version 1)
Quarter: 2013Q1

REPORT INFORMATION
  Report Type: Spontaneous
  Country: US (occurrence: None)
  Receive Date: 20130305
  Receipt Date: 20130305
  Transmission Date: 20140127
  Serious: Yes (Hospitalization, Other)
  Sender: FDA-Public Use
  Company Number: 163-21880-12062792

PATIENT
  Age: 85 Year
  Sex: Female

DRUGS (9)
  1. REVLIMID [Suspect]
     Indication: PLASMA CELL MYELOMA
     Dosage: 1 IN 1 D
     Route: 048
     Dates: start: 20120424, end: 20120618
  2. DEXAMETHASONE (DEXAMETHASONE) [Concomitant]
  3. ZOLEDRONATE (ZOLEDRONIC ACID) [Concomitant]
  4. AMLODIPINE (AMLODIPINE) [Concomitant]
  5. FUROSEMIDE (FUROSEMIDE) (40 MILLIGRAM, TABLETS) [Concomitant]
  6. HYDROCODONE-ACETAMINOPHEN (VICODIN) [Concomitant]
  7. LISINOPRIL (LISINOPRIL) (10 MILLIGRAM, TABLETS) [Concomitant]
  8. METOPROLOL TARTRATE (METOPROLOL TARTRATE) (TABLETS) (METOPROLOL TARTRATE) [Concomitant]
  9. POTASSIUM CHLORIDE  (POTASSIUM CHLORIDE) [Concomitant]

REACTIONS (6)
  - Gastrointestinal haemorrhage [None]
  - Haemoglobin decreased [None]
  - Cellulitis [None]
  - Neutrophil count abnormal [None]
  - White blood cell count abnormal [None]
  - Haematocrit abnormal [None]
